FAERS Safety Report 21826546 (Version 3)
Quarter: 2023Q1

REPORT INFORMATION
  Report Type: Spontaneous
  Country: US (occurrence: US)
  Receive Date: 20230106
  Receipt Date: 20230208
  Transmission Date: 20230418
  Serious: Yes (Hospitalization)
  Sender: FDA-Public Use
  Company Number: US-AMGEN-USASP2022222556

PATIENT
  Age: 80 Year
  Sex: Male

DRUGS (2)
  1. REPATHA [Suspect]
     Active Substance: EVOLOCUMAB
     Indication: Hypercholesterolaemia
     Dosage: 140 MILLIGRAM, Q2WK
     Route: 058
     Dates: start: 2017
  2. REPATHA [Suspect]
     Active Substance: EVOLOCUMAB
     Dosage: 140 MILLIGRAM, Q2WK
     Route: 058

REACTIONS (2)
  - Unevaluable event [Unknown]
  - Device difficult to use [Unknown]

NARRATIVE: CASE EVENT DATE: 20221220
